FAERS Safety Report 9060266 (Version 1)
Quarter: 2013Q1

REPORT INFORMATION
  Report Type: Spontaneous
  Country: US (occurrence: None)
  Receive Date: 20130207
  Receipt Date: 20130207
  Transmission Date: 20140127
  Serious: No
  Sender: FDA-Public Use
  Company Number: None

PATIENT
  Age: 81 Year
  Sex: Female
  Weight: 54.89 kg

DRUGS (3)
  1. BRIMONIDINE [Suspect]
     Indication: GLAUCOMA
     Dosage: USED 1 BOTTLE TWICE/DAY
     Dates: end: 20130104
  2. BRIMONIDINE [Suspect]
     Indication: EYE PAIN
     Dosage: USED 1 BOTTLE TWICE/DAY
     Dates: end: 20130104
  3. BRIMONIDINE [Suspect]
     Indication: VISUAL ACUITY REDUCED
     Dosage: USED 1 BOTTLE TWICE/DAY
     Dates: end: 20130104

REACTIONS (7)
  - Eye irritation [None]
  - Drug ineffective [None]
  - Visual acuity reduced [None]
  - Condition aggravated [None]
  - Lens disorder [None]
  - Product substitution issue [None]
  - Product quality issue [None]
